FAERS Safety Report 13250404 (Version 1)
Quarter: 2017Q1

REPORT INFORMATION
  Report Type: Report from Study
  Country: NL (occurrence: NL)
  Receive Date: 20170218
  Receipt Date: 20170218
  Transmission Date: 20170428
  Serious: Yes (Hospitalization)
  Sender: FDA-Public Use
  Company Number: NL-AMGEN-NLDSL2017023700

PATIENT
  Age: 68 Year
  Sex: Female

DRUGS (20)
  1. DEXAMETHASON [Concomitant]
     Active Substance: DEXAMETHASONE
     Dosage: 2 MG, QD
     Dates: start: 20161031, end: 20161114
  2. XGEVA [Suspect]
     Active Substance: DENOSUMAB
     Indication: METASTASES TO BONE
  3. ESOMEPRAZOL [Concomitant]
     Active Substance: ESOMEPRAZOLE
     Dosage: 40 MG, QD
     Dates: start: 20170211
  4. MOXIFLOXACINE [Concomitant]
     Active Substance: MOXIFLOXACIN
     Dosage: 250 ML(1.6MG/ML), QD
     Dates: start: 20170211
  5. DEXAMETHASON [Concomitant]
     Active Substance: DEXAMETHASONE
     Dosage: 0.5 MG, UNK
     Dates: start: 20161031, end: 20170211
  6. DECTAFLUR W/OLAFLUR [Concomitant]
     Dosage: 12.5 MG/G UNK
     Dates: start: 20161013
  7. DEXTRAN 70 W/HYPROMELLOSE [Concomitant]
     Dosage: 1/3 MG/ML, QD
     Dates: start: 20160930
  8. TAMOXIFEN [Concomitant]
     Active Substance: TAMOXIFEN
     Indication: BREAST CANCER
     Dosage: UNK
  9. XGEVA [Suspect]
     Active Substance: DENOSUMAB
     Indication: METASTASES TO BREAST
     Dosage: 120 MG, Q4WK
     Route: 058
     Dates: start: 20130408
  10. NITROFURANTOINE [Concomitant]
     Dosage: 100 MG, UNK
     Dates: start: 20161201, end: 20161205
  11. PARACETAMOL [Concomitant]
     Active Substance: ACETAMINOPHEN
     Dosage: 500 MG, QD
     Dates: start: 20170211
  12. CALCIUMCARBONAT [Concomitant]
     Dosage: 500 MG(1.25G), QD
     Dates: start: 20130318
  13. FULVESTRANT [Concomitant]
     Active Substance: FULVESTRANT
     Dosage: 250 MG(50MG/ML), UNK
     Dates: start: 20160901, end: 20161130
  14. KETOCONAZOL [Concomitant]
     Active Substance: KETOCONAZOLE
     Dosage: 20 MG/G, UNK
     Dates: start: 20170116
  15. DALTEPARIN [Concomitant]
     Active Substance: DALTEPARIN
     Dosage: 0.2 ML, QD
     Dates: start: 20170211
  16. COLECALCIFEROL [Concomitant]
     Active Substance: CHOLECALCIFEROL
     Dosage: 500 MG(1.25G), QD
     Dates: start: 20130318
  17. FOSFOMYCINE [Concomitant]
     Active Substance: FOSFOMYCIN
     Dosage: 3 G, QD
     Dates: start: 20161213, end: 20161213
  18. ZOLPIDEM [Concomitant]
     Active Substance: ZOLPIDEM\ZOLPIDEM TARTRATE
     Dosage: 10 MG, QD
     Dates: start: 20160915
  19. NATRIUMFLUORID [Concomitant]
     Dosage: 12.5 MG/G, UNK
     Dates: start: 20161013
  20. EXEMESTAAN [Concomitant]
     Active Substance: EXEMESTANE
     Dosage: 25 MG, QD
     Dates: start: 20170211

REACTIONS (3)
  - Cough [Unknown]
  - Body temperature abnormal [Unknown]
  - Dyspnoea [Unknown]
